FAERS Safety Report 8053935-5 (Version None)
Quarter: 2012Q1

REPORT INFORMATION
  Report Type: 
  Country: None (occurrence: None)
  Receive Date: 20120118
  Receipt Date: 20120116
  Transmission Date: 20120608
  Serious: Yes (Hospitalization)
  Sender: FDA-Public Use
  Company Number: US-ELI_LILLY_AND_COMPANY-US201112001630

PATIENT
  Sex: Female

DRUGS (6)
  1. HUMALOG [Suspect]
  2. HUMULIN U [Suspect]
     Indication: TYPE 2 DIABETES MELLITUS
  3. LANTUS [Concomitant]
     Indication: TYPE 2 DIABETES MELLITUS
     Dosage: UNK
     Dates: end: 20030901
  4. HUMULIN R [Suspect]
     Indication: TYPE 2 DIABETES MELLITUS
     Dosage: UNK
  5. HUMULIN 70/30 [Suspect]
     Indication: TYPE 2 DIABETES MELLITUS
  6. HUMULIN N [Suspect]
     Indication: TYPE 2 DIABETES MELLITUS
     Dosage: UNK

REACTIONS (2)
  - HYPERSENSITIVITY [None]
  - HYPOTENSION [None]
